FAERS Safety Report 16300615 (Version 1)
Quarter: 2019Q2

REPORT INFORMATION
  Report Type: Spontaneous
  Country: US (occurrence: US)
  Receive Date: 20190510
  Receipt Date: 20190510
  Transmission Date: 20190711
  Serious: Yes (Other)
  Sender: FDA-Public Use
  Company Number: US-SYNEX-T201903513

PATIENT

DRUGS (1)
  1. INOMAX [Suspect]
     Active Substance: NITRIC OXIDE
     Indication: NEWBORN PERSISTENT PULMONARY HYPERTENSION
     Dosage: UNK
     Route: 065

REACTIONS (1)
  - Carboxyhaemoglobin increased [Unknown]

NARRATIVE: CASE EVENT DATE: 20190429
